FAERS Safety Report 4891991-3 (Version None)
Quarter: 2006Q1

REPORT INFORMATION
  Report Type: 
  Country: None (occurrence: None)
  Receive Date: 20060124
  Receipt Date: 20060124
  Transmission Date: 20060701
  Serious: Yes (Hospitalization)
  Sender: FDA-Public Use
  Company Number: None

PATIENT
  Age: 10 Year
  Sex: Male
  Weight: 6.5 kg

DRUGS (4)
  1. GEMTUZUMAB OZOGAMICIN [Suspect]
     Indication: ACUTE LEUKAEMIA
     Dosage: 6 MG /M2 IV (1 DOSE)
     Route: 042
     Dates: start: 20050322
  2. ALEMTUZUMAB [Suspect]
     Dosage: 3 DOSES
     Dates: start: 20050324
  3. ALEMTUZUMAB [Suspect]
     Dosage: 3 DOSES
     Dates: start: 20050325
  4. ALEMTUZUMAB [Suspect]
     Dosage: 3 DOSES
     Dates: start: 20050326

REACTIONS (7)
  - BLOOD BILIRUBIN INCREASED [None]
  - FLUID OVERLOAD [None]
  - HEPATIC FUNCTION ABNORMAL [None]
  - SEPSIS [None]
  - TRANSAMINASES INCREASED [None]
  - VENOOCCLUSIVE LIVER DISEASE [None]
  - WEIGHT INCREASED [None]
